FAERS Safety Report 8495128-3 (Version None)
Quarter: 2012Q3

REPORT INFORMATION
  Report Type: 
  Country: None (occurrence: None)
  Receive Date: 20120709
  Receipt Date: 20120627
  Transmission Date: 20120928
  Serious: Yes (Hospitalization)
  Sender: FDA-Public Use
  Company Number: PL-NOVOPROD-354859

PATIENT
  Age: 71 Year
  Sex: Female
  Weight: 73 kg

DRUGS (1)
  1. VICTOZA [Suspect]
     Indication: TYPE 2 DIABETES MELLITUS

REACTIONS (1)
  - CHOLECYSTITIS ACUTE [None]
